FAERS Safety Report 14780155 (Version 2)
Quarter: 2018Q3

REPORT INFORMATION
  Report Type: Spontaneous
  Country: US (occurrence: US)
  Receive Date: 20180419
  Receipt Date: 20180913
  Transmission Date: 20181010
  Serious: Yes (Other)
  Sender: FDA-Public Use
  Company Number: US-ASTRAZENECA-2018SE47074

PATIENT
  Age: 20085 Day
  Sex: Male
  Weight: 88.5 kg

DRUGS (91)
  1. NEXIUM [Suspect]
     Active Substance: ESOMEPRAZOLE MAGNESIUM
     Indication: GASTROOESOPHAGEAL REFLUX DISEASE
     Route: 048
     Dates: start: 2008, end: 2017
  2. IBUPROFEN. [Concomitant]
     Active Substance: IBUPROFEN
     Indication: MYALGIA
     Dosage: 2008; 2014
  3. CALCIPOTRIENE. [Concomitant]
     Active Substance: CALCIPOTRIENE
     Indication: PSORIASIS
     Dates: start: 20120830
  4. ZESTRIL [Concomitant]
     Active Substance: LISINOPRIL
     Indication: HYPERTENSION
     Dosage: LISINORIL
     Dates: start: 2008, end: 201803
  5. DOVONEX [Concomitant]
     Active Substance: CALCIPOTRIENE
     Indication: PSORIASIS
     Dates: start: 20080310
  6. TAZORAC [Concomitant]
     Active Substance: TAZAROTENE
     Indication: PSORIASIS
     Dates: start: 2010
  7. HYDROCORTISONE. [Concomitant]
     Active Substance: HYDROCORTISONE
     Dates: start: 20090804
  8. PROTOPIC [Concomitant]
     Active Substance: TACROLIMUS
     Dates: start: 20140403
  9. NEXIUM [Suspect]
     Active Substance: ESOMEPRAZOLE MAGNESIUM
     Indication: GASTROOESOPHAGEAL REFLUX DISEASE
     Route: 048
     Dates: start: 20080109
  10. PRILOSEC [Suspect]
     Active Substance: OMEPRAZOLE MAGNESIUM
     Indication: GASTROOESOPHAGEAL REFLUX DISEASE
     Route: 048
     Dates: start: 20080101, end: 20080107
  11. ZESTRIL [Concomitant]
     Active Substance: LISINOPRIL
     Indication: HYPERTENSION
     Dates: start: 2010, end: 2017
  12. DOVONEX [Concomitant]
     Active Substance: CALCIPOTRIENE
     Indication: PSORIASIS
     Dates: start: 2009, end: 2012
  13. AZITHROMYCIN ANHYDROUS. [Concomitant]
     Active Substance: AZITHROMYCIN ANHYDROUS
     Indication: INFECTION
     Dates: start: 2008, end: 2013
  14. VECTICAL [Concomitant]
     Active Substance: CALCITRIOL
     Indication: PSORIASIS
     Dosage: CALCITRIOL? 3 MCG/G
     Dates: start: 20121108
  15. TAZORAC [Concomitant]
     Active Substance: TAZAROTENE
     Indication: PSORIASIS
     Dates: start: 20100606
  16. UREA. [Concomitant]
     Active Substance: UREA
     Dates: start: 20090223
  17. FLUCONAZOLE. [Concomitant]
     Active Substance: FLUCONAZOLE
     Route: 048
     Dates: start: 20140417
  18. IPRATROPIUM [Concomitant]
     Active Substance: IPRATROPIUM
     Dates: start: 20180102
  19. ENBREL [Concomitant]
     Active Substance: ETANERCEPT
  20. NEXIUM [Suspect]
     Active Substance: ESOMEPRAZOLE MAGNESIUM
     Indication: GASTROOESOPHAGEAL REFLUX DISEASE
     Dosage: ESOMEPRAZOLE MAG DR
     Route: 048
     Dates: start: 20150303
  21. RANITIDINE. [Concomitant]
     Active Substance: RANITIDINE
     Indication: GASTROOESOPHAGEAL REFLUX DISEASE
     Dates: start: 201802
  22. HYDROCODONE BITARTRATE AND ACETAMINOPHEN [Concomitant]
     Active Substance: ACETAMINOPHEN\HYDROCODONE BITARTRATE
     Indication: PAIN
     Dates: start: 2009, end: 2011
  23. FLUOCINONIDE. [Concomitant]
     Active Substance: FLUOCINONIDE
     Indication: SKIN DISORDER
     Dates: start: 2011, end: 2017
  24. FLUOCINONIDE. [Concomitant]
     Active Substance: FLUOCINONIDE
     Indication: SKIN DISORDER
     Dates: start: 20080707
  25. AMOXICILLIN. [Concomitant]
     Active Substance: AMOXICILLIN
     Indication: INFECTION
     Route: 048
     Dates: start: 20140122
  26. VECTICAL [Concomitant]
     Active Substance: CALCITRIOL
     Indication: PSORIASIS
     Dates: start: 2009, end: 2016
  27. BACITRACIN?POLYMYXIN [Concomitant]
     Route: 047
     Dates: start: 20131028
  28. OFLOXACIN. [Concomitant]
     Active Substance: OFLOXACIN
     Route: 047
     Dates: start: 20150714
  29. NEXIUM [Suspect]
     Active Substance: ESOMEPRAZOLE MAGNESIUM
     Indication: GASTROOESOPHAGEAL REFLUX DISEASE
     Route: 048
     Dates: start: 20080109
  30. ZESTRIL [Concomitant]
     Active Substance: LISINOPRIL
     Indication: HYPERTENSION
     Dosage: LISINORIL
     Route: 048
     Dates: start: 20080104
  31. TACLONEX [Concomitant]
     Active Substance: BETAMETHASONE DIPROPIONATE\CALCIPOTRIENE\CALCIPOTRIENE HYDRATE
     Indication: PSORIASIS
     Dates: start: 20080129
  32. HYDROCODONE BITARTRATE AND ACETAMINOPHEN [Concomitant]
     Active Substance: ACETAMINOPHEN\HYDROCODONE BITARTRATE
     Indication: PAIN
     Route: 048
     Dates: start: 20090805
  33. OXYCODONE/ACETAMINOPHEN [Concomitant]
     Active Substance: ACETAMINOPHEN\OXYCODONE HYDROCHLORIDE
     Indication: PAIN
     Route: 048
     Dates: start: 20100515
  34. FLUOCINONIDE. [Concomitant]
     Active Substance: FLUOCINONIDE
     Indication: SKIN DISORDER
     Dates: start: 20080827
  35. FLUTICASONE PROPIONATE. [Concomitant]
     Active Substance: FLUTICASONE PROPIONATE
     Dates: start: 20090904
  36. SORIATANE [Concomitant]
     Active Substance: ACITRETIN
     Route: 048
     Dates: start: 20120410
  37. PREDNISOLONE. [Concomitant]
     Active Substance: PREDNISOLONE
     Dosage: AC
     Route: 047
     Dates: start: 20150714
  38. CIPROFLOXACIN HYDROCHLORIDE. [Concomitant]
     Active Substance: CIPROFLOXACIN HYDROCHLORIDE
     Route: 048
     Dates: start: 20161026
  39. LEVALBUTEROL. [Concomitant]
     Active Substance: LEVALBUTEROL
     Dosage: TAR HFA45MCG INH
     Dates: start: 20180103
  40. NEXIUM [Suspect]
     Active Substance: ESOMEPRAZOLE MAGNESIUM
     Indication: GASTROOESOPHAGEAL REFLUX DISEASE
     Dosage: ESOMEPRAZOLE MAG DR
     Route: 048
     Dates: start: 20150303
  41. VALSARTAN. [Concomitant]
     Active Substance: VALSARTAN
     Indication: HYPERTENSION
     Dates: start: 2018
  42. CIALIS [Concomitant]
     Active Substance: TADALAFIL
     Indication: ERECTILE DYSFUNCTION
     Dates: start: 2008
  43. RANITIDINE. [Concomitant]
     Active Substance: RANITIDINE
     Indication: GASTROOESOPHAGEAL REFLUX DISEASE
     Dates: start: 201802
  44. RANITIDINE. [Concomitant]
     Active Substance: RANITIDINE
     Indication: GASTROOESOPHAGEAL REFLUX DISEASE
     Route: 048
     Dates: start: 20171214
  45. OXYCODONE/ACETAMINOPHEN [Concomitant]
     Active Substance: ACETAMINOPHEN\OXYCODONE HYDROCHLORIDE
     Indication: PAIN
     Dates: start: 2010, end: 2016
  46. VALSARTAN. [Concomitant]
     Active Substance: VALSARTAN
     Indication: HYPERTENSION
     Dates: start: 201803
  47. SINGULAIR [Concomitant]
     Active Substance: MONTELUKAST SODIUM
     Route: 048
     Dates: start: 20090904
  48. CHLORHEXIDINE [Concomitant]
     Active Substance: CHLORHEXIDINE
     Dates: start: 20110412
  49. AMOX TR?K CLV [Concomitant]
     Active Substance: AMOXICILLIN\CLAVULANATE POTASSIUM
     Dosage: 875?125 MG
     Route: 048
     Dates: start: 20110412
  50. KETOCONAZOLE. [Concomitant]
     Active Substance: KETOCONAZOLE
     Dates: start: 20120208
  51. POLYMYXIN B? TMP [Concomitant]
     Dates: start: 20131028
  52. VITAMIN D2 [Concomitant]
     Active Substance: ERGOCALCIFEROL
     Dosage: 1.25 MG (50,000 UNIT)
     Dates: start: 20131114
  53. PROTOPIC [Concomitant]
     Active Substance: TACROLIMUS
     Dosage: TACROLIMUS
     Dates: start: 20150224
  54. SPIRIVA RESPIMAT [Concomitant]
     Active Substance: TIOTROPIUM BROMIDE
     Dosage: INH
     Dates: start: 20180102
  55. NEXIUM [Suspect]
     Active Substance: ESOMEPRAZOLE MAGNESIUM
     Indication: GASTROOESOPHAGEAL REFLUX DISEASE
     Dosage: ESOMEPRAZOLE? 40MG, ONCE DAILY
     Route: 048
     Dates: start: 201503
  56. VITAMIN C [Concomitant]
     Active Substance: ASCORBIC ACID
     Indication: ROUTINE HEALTH MAINTENANCE
     Dates: start: 2008
  57. ZANTAC [Concomitant]
     Active Substance: RANITIDINE HYDROCHLORIDE
     Dosage: 300 (PRESCRIPTION)
     Dates: start: 2017
  58. ASMANEX [Concomitant]
     Active Substance: MOMETASONE FUROATE
     Indication: DYSPNOEA
     Dates: start: 2008
  59. TAMSULOSIN [Concomitant]
     Active Substance: TAMSULOSIN
     Indication: PROSTATOMEGALY
     Dates: start: 2016
  60. CALCIPOTRIENE. [Concomitant]
     Active Substance: CALCIPOTRIENE
     Indication: PSORIASIS
     Dates: start: 2014, end: 2016
  61. ZESTRIL [Concomitant]
     Active Substance: LISINOPRIL
     Indication: HYPERTENSION
     Dates: start: 2011, end: 2017
  62. LIDODERM [Concomitant]
     Active Substance: LIDOCAINE
     Dates: start: 20081020
  63. PENICILLIN VK [Concomitant]
     Active Substance: PENICILLIN V POTASSIUM
     Route: 048
     Dates: start: 20100301
  64. SULFAMETHOXAZOLE?TMP [Concomitant]
     Active Substance: SULFAMETHOXAZOLE\TRIMETHOPRIM
     Route: 048
     Dates: start: 20100625
  65. OFLOXACIN. [Concomitant]
     Active Substance: OFLOXACIN
     Route: 048
     Dates: start: 20110412
  66. KETOROLAC [Concomitant]
     Active Substance: KETOROLAC\KETOROLAC TROMETHAMINE
     Route: 047
     Dates: start: 20150714
  67. XOPENEX [Concomitant]
     Active Substance: LEVALBUTEROL HYDROCHLORIDE
     Dosage: HFA 45 MCG INHALER
     Dates: start: 20160808
  68. NEXIUM [Suspect]
     Active Substance: ESOMEPRAZOLE MAGNESIUM
     Indication: GASTROOESOPHAGEAL REFLUX DISEASE
     Route: 048
     Dates: start: 2002, end: 2017
  69. NEXIUM [Suspect]
     Active Substance: ESOMEPRAZOLE MAGNESIUM
     Indication: GASTROOESOPHAGEAL REFLUX DISEASE
     Route: 048
     Dates: start: 2002, end: 2017
  70. PRILOSEC [Suspect]
     Active Substance: OMEPRAZOLE MAGNESIUM
     Indication: GASTROOESOPHAGEAL REFLUX DISEASE
     Route: 048
     Dates: start: 20080101, end: 20080107
  71. IBUPROFEN. [Concomitant]
     Active Substance: IBUPROFEN
     Indication: MYALGIA
     Dates: start: 20080619
  72. ASMANEX [Concomitant]
     Active Substance: MOMETASONE FUROATE
     Indication: DYSPNOEA
     Dosage: TWISTHALER
     Dates: start: 20160805
  73. RANITIDINE. [Concomitant]
     Active Substance: RANITIDINE
     Indication: GASTROOESOPHAGEAL REFLUX DISEASE
     Route: 048
     Dates: start: 20171214
  74. TAMSULOSIN [Concomitant]
     Active Substance: TAMSULOSIN
     Indication: PROSTATOMEGALY
     Dosage: TAMSULOSIN HCL
     Route: 048
     Dates: start: 20160825
  75. TACLONEX [Concomitant]
     Active Substance: BETAMETHASONE DIPROPIONATE\CALCIPOTRIENE\CALCIPOTRIENE HYDRATE
     Indication: PSORIASIS
     Dates: start: 2008
  76. TACLONEX [Concomitant]
     Active Substance: BETAMETHASONE DIPROPIONATE\CALCIPOTRIENE\CALCIPOTRIENE HYDRATE
     Indication: PSORIASIS
     Dates: start: 2008, end: 2009
  77. VECTICAL [Concomitant]
     Active Substance: CALCITRIOL
     Indication: PSORIASIS
     Dosage: 3 MCG/G
     Dates: start: 20090804
  78. PROAIR HFA [Concomitant]
     Active Substance: ALBUTEROL SULFATE
     Dosage: HFA 90 MCG INHALER
     Dates: start: 20090713
  79. IOPHEN [Concomitant]
     Dosage: C NR LIQUID
     Dates: start: 20140512
  80. NEXIUM [Suspect]
     Active Substance: ESOMEPRAZOLE MAGNESIUM
     Indication: GASTROOESOPHAGEAL REFLUX DISEASE
     Route: 048
     Dates: start: 2008, end: 2017
  81. NEXIUM [Suspect]
     Active Substance: ESOMEPRAZOLE MAGNESIUM
     Indication: GASTROOESOPHAGEAL REFLUX DISEASE
     Dosage: ESOMEPRAZOLE? 40MG, ONCE DAILY
     Route: 048
     Dates: start: 201503
  82. CIALIS [Concomitant]
     Active Substance: TADALAFIL
     Indication: ERECTILE DYSFUNCTION
     Route: 048
     Dates: start: 20080109
  83. DOVONEX [Concomitant]
     Active Substance: CALCIPOTRIENE
     Indication: PSORIASIS
     Dates: start: 2008
  84. AZITHROMYCIN ANHYDROUS. [Concomitant]
     Active Substance: AZITHROMYCIN ANHYDROUS
     Indication: INFECTION
     Dates: start: 20080207
  85. AMOXICILLIN. [Concomitant]
     Active Substance: AMOXICILLIN
     Indication: INFECTION
     Dates: start: 2014, end: 2016
  86. ZOLPIDEM TARTRATE. [Concomitant]
     Active Substance: ZOLPIDEM TARTRATE
     Route: 048
     Dates: start: 20080819
  87. TRIAMCINOLONE [Concomitant]
     Active Substance: TRIAMCINOLONE
     Dates: start: 20090223
  88. ADVAIR?DISKUS [Concomitant]
     Dates: start: 20090723
  89. FLUTICASONE PROPIONATE. [Concomitant]
     Active Substance: FLUTICASONE PROPIONATE
     Dosage: FLOVENT HFA? INHALER
     Dates: start: 20100625
  90. KETOCONAZOLE. [Concomitant]
     Active Substance: KETOCONAZOLE
     Route: 048
     Dates: start: 20110823
  91. DYMISTA [Concomitant]
     Active Substance: AZELASTINE HYDROCHLORIDE\FLUTICASONE PROPIONATE
     Dosage: NASAL SPRAY
     Dates: start: 20160805

REACTIONS (2)
  - Chronic kidney disease [Not Recovered/Not Resolved]
  - Renal impairment [Unknown]

NARRATIVE: CASE EVENT DATE: 20121227
